FAERS Safety Report 7315060-8 (Version None)
Quarter: 2011Q1

REPORT INFORMATION
  Report Type: 
  Country: None (occurrence: None)
  Receive Date: 20110225
  Receipt Date: 20100416
  Transmission Date: 20110831
  Serious: No
  Sender: FDA-Public Use
  Company Number: US-MYLANLABS-2010S1005089

PATIENT
  Age: 14 Year
  Sex: Female
  Weight: 58.97 kg

DRUGS (2)
  1. AMNESTEEM [Suspect]
     Indication: ACNE
     Route: 048
     Dates: start: 20091221, end: 20100325
  2. AMNESTEEM [Suspect]
     Route: 048
     Dates: start: 20091221, end: 20100325

REACTIONS (1)
  - DRY SKIN [None]
